FAERS Safety Report 13177904 (Version 1)
Quarter: 2017Q1

REPORT INFORMATION
  Report Type: Spontaneous
  Country: US (occurrence: US)
  Receive Date: 20170202
  Receipt Date: 20170202
  Transmission Date: 20170428
  Serious: No
  Sender: FDA-Public Use
  Company Number: US-BAUSCH-BL-2016-001147

PATIENT
  Sex: Male
  Weight: 47.67 kg

DRUGS (1)
  1. MIGRANAL [Suspect]
     Active Substance: DIHYDROERGOTAMINE MESYLATE
     Indication: MIGRAINE
     Route: 065

REACTIONS (2)
  - Drug dose omission [Unknown]
  - Product quality issue [Unknown]
